FAERS Safety Report 6256640-0 (Version None)
Quarter: 2009Q3

REPORT INFORMATION
  Report Type: 
  Country: None (occurrence: None)
  Receive Date: 20090706
  Receipt Date: 20090625
  Transmission Date: 20100115
  Serious: Yes (Other)
  Sender: FDA-Public Use
  Company Number: US-JNJFOC-20090609421

PATIENT
  Sex: Female

DRUGS (3)
  1. REMICADE [Suspect]
     Indication: COLITIS ULCERATIVE
     Route: 042
  2. ASACOL [Concomitant]
  3. PREDNISONE [Concomitant]

REACTIONS (1)
  - LUNG INFILTRATION [None]
